FAERS Safety Report 17273724 (Version 2)
Quarter: 2020Q1

REPORT INFORMATION
  Report Type: Spontaneous
  Country: US (occurrence: US)
  Receive Date: 20200115
  Receipt Date: 20200130
  Transmission Date: 20200409
  Serious: Yes (Hospitalization)
  Sender: FDA-Public Use
  Company Number: US-AKCEA THERAPEUTICS-2020IS001024

PATIENT

DRUGS (2)
  1. TEGSEDI [Suspect]
     Active Substance: INOTERSEN SODIUM
     Indication: PRODUCT USED FOR UNKNOWN INDICATION
     Dosage: UNK
     Route: 065
     Dates: start: 201308, end: 201801
  2. TEGSEDI [Suspect]
     Active Substance: INOTERSEN SODIUM
     Dosage: UNK
     Route: 065
     Dates: end: 201909

REACTIONS (2)
  - Adverse drug reaction [Unknown]
  - Drug intolerance [Unknown]

NARRATIVE: CASE EVENT DATE: 20181102
